FAERS Safety Report 7317570 (Version 4)
Quarter: 2014Q1

REPORT INFORMATION
  Report Type: Spontaneous
  Country: US (occurrence: US)
  Receive Date: 20100312
  Receipt Date: 20140116
  Transmission Date: 20141002
  Serious: Yes (Other)
  Sender: FDA-Public Use
  Company Number: US-BAYER-201016111NA

PATIENT
  Age: 28 Year
  Sex: Female
  Weight: 106.58 kg

DRUGS (13)
  1. YAZ [Suspect]
     Indication: CONTRACEPTION
     Dosage: 1 DF, QD
     Route: 048
     Dates: start: 2008, end: 2009
  2. YAZ [Suspect]
     Indication: ACNE
  3. YAZ [Suspect]
     Indication: PREMENSTRUAL SYNDROME
  4. YASMIN [Suspect]
     Indication: CONTRACEPTION
     Dosage: 1 DF, QD
     Route: 048
     Dates: start: 2005, end: 2006
  5. YASMIN [Suspect]
     Indication: ACNE
  6. YASMIN [Suspect]
     Indication: PREMENSTRUAL SYNDROME
  7. ALLEGRA [Concomitant]
     Indication: MULTIPLE ALLERGIES
  8. NEXIUM [Concomitant]
     Indication: GASTROOESOPHAGEAL REFLUX DISEASE
  9. SERTRALINE [Concomitant]
     Indication: DEPRESSION
  10. PROMETHAZINE [Concomitant]
     Dosage: 1 EVERY 4-6 HOURS AS NEEDED
     Route: 048
     Dates: start: 20081110
  11. HYDROCODONE [Concomitant]
     Dosage: 5MG/325MG; 1 FOUR TIMES DAILY AS NEEDED
     Route: 048
     Dates: start: 20081118
  12. DICYCLOMINE [Concomitant]
     Dosage: 20 MG, QID
     Route: 048
     Dates: start: 20081211
  13. SUMATRIPTAN [Concomitant]
     Dosage: 50MG; ONE HALF TABLET EVERY 2 HOURS AS
     Route: 048
     Dates: start: 20081215

REACTIONS (3)
  - Gallbladder injury [Unknown]
  - Cholecystitis chronic [None]
  - Abdominal pain [None]
